FAERS Safety Report 6032726-0 (Version None)
Quarter: 2009Q1

REPORT INFORMATION
  Report Type: 
  Country: None (occurrence: None)
  Receive Date: 20090109
  Receipt Date: 20081230
  Transmission Date: 20090719
  Serious: Yes (Hospitalization)
  Sender: FDA-Public Use
  Company Number: FR-PFIZER INC-2005127032

PATIENT

DRUGS (3)
  1. SUNITINIB MALATE [Suspect]
     Indication: METASTATIC RENAL CELL CARCINOMA
     Dosage: 37.5 MG, 1X/DAY
     Route: 048
     Dates: start: 20050326
  2. NICARDIPINE HYDROCHLORIDE [Concomitant]
     Route: 048
     Dates: start: 20050409, end: 20050910
  3. ALUMINIUM HYDROXIDE W/ MAGNESIUM HYDROXIDE [Concomitant]
     Route: 048
     Dates: start: 20050831

REACTIONS (1)
  - TACHYCARDIA [None]
